FAERS Safety Report 14707375 (Version 1)
Quarter: 2018Q2

REPORT INFORMATION
  Report Type: Spontaneous
  Country: IT (occurrence: IT)
  Receive Date: 20180403
  Receipt Date: 20180403
  Transmission Date: 20180711
  Serious: Yes (Disabling)
  Sender: FDA-Public Use
  Company Number: IT-ASTRAZENECA-2018SE39373

PATIENT
  Age: 72 Year
  Sex: Male

DRUGS (10)
  1. ALMARYTM [Concomitant]
     Active Substance: FLECAINIDE ACETATE
  2. DIURESIX [Concomitant]
     Active Substance: TORSEMIDE
     Dosage: 10.0MG UNKNOWN
  3. OMEPRAZEN [Concomitant]
     Active Substance: OMEPRAZOLE
  4. SINTROM [Concomitant]
     Active Substance: ACENOCOUMAROL
  5. XIGDUO XR [Suspect]
     Active Substance: DAPAGLIFLOZIN PROPANEDIOL\METFORMIN HYDROCHLORIDE
     Indication: INSULIN-REQUIRING TYPE 2 DIABETES MELLITUS
     Route: 048
     Dates: start: 20161220, end: 20170528
  6. LANTUS [Concomitant]
     Active Substance: INSULIN GLARGINE
  7. PRAVASELECT [Suspect]
     Active Substance: PRAVASTATIN SODIUM
     Indication: DYSLIPIDAEMIA
     Route: 048
  8. GLUCOPHAGE [Concomitant]
     Active Substance: METFORMIN HYDROCHLORIDE
  9. TRIATEC (RAMIPRIL) [Concomitant]
     Active Substance: RAMIPRIL
  10. SELOKEN [Concomitant]
     Active Substance: METOPROLOL

REACTIONS (4)
  - Alopecia [Recovered/Resolved with Sequelae]
  - Pruritus generalised [Recovered/Resolved with Sequelae]
  - Skin exfoliation [Recovered/Resolved with Sequelae]
  - Rash erythematous [Recovered/Resolved with Sequelae]

NARRATIVE: CASE EVENT DATE: 20170430
